FAERS Safety Report 5398508-8 (Version None)
Quarter: 2007Q3

REPORT INFORMATION
  Report Type: 
  Country: None (occurrence: None)
  Receive Date: 20070726
  Receipt Date: 20061120
  Transmission Date: 20080115
  Serious: No
  Sender: FDA-Public Use
  Company Number: US-AMGEN-KDL201220

PATIENT
  Sex: Male
  Weight: 64.9 kg

DRUGS (5)
  1. PROCRIT [Suspect]
     Indication: ANAEMIA OF MALIGNANT DISEASE
     Dates: start: 20061001
  2. GEMZAR [Concomitant]
  3. GLUCOSE [Concomitant]
     Indication: DIABETES MELLITUS
  4. METFORMIN HCL [Concomitant]
  5. LIPITOR [Concomitant]

REACTIONS (2)
  - PRURITUS [None]
  - RASH [None]
